FAERS Safety Report 7673254-6 (Version None)
Quarter: 2011Q3

REPORT INFORMATION
  Report Type: 
  Country: None (occurrence: None)
  Receive Date: 20110810
  Receipt Date: 20110804
  Transmission Date: 20111222
  Serious: Yes (Other)
  Sender: FDA-Public Use
  Company Number: US-PFIZER INC-2011179285

PATIENT
  Sex: Male
  Weight: 78.912 kg

DRUGS (2)
  1. LISINOPRIL [Concomitant]
     Indication: HYPERTENSION
     Dosage: 10 MG, 1X/DAY
  2. VIAGRA [Suspect]
     Dosage: UNK
     Route: 048
     Dates: start: 20110101

REACTIONS (7)
  - PRURITUS [None]
  - DRUG EFFECT DECREASED [None]
  - BLOOD CHOLESTEROL ABNORMAL [None]
  - ANXIETY [None]
  - TREMOR [None]
  - NERVOUSNESS [None]
  - ERECTION INCREASED [None]
